FAERS Safety Report 10900485 (Version 1)
Quarter: 2015Q1

REPORT INFORMATION
  Report Type: Spontaneous
  Country: GB (occurrence: None)
  Receive Date: 20150303
  Receipt Date: 20150303
  Transmission Date: 20150721
  Serious: Yes (Death)
  Sender: FDA-Public Use
  Company Number: FK201501006

PATIENT
  Age: 71 Year
  Sex: Female
  Weight: 64.3 kg

DRUGS (2)
  1. CARBOPLATIN (MANUFACTURER UNKNOWN) (CARBOPLATIN) (CARBOPLATIN) [Suspect]
     Active Substance: CARBOPLATIN
     Indication: PRODUCT USED FOR UNKNOWN INDICATION
     Dosage: 40 MG, INTRAVENOUS (NOT OTHERWISE SPECIFIED)
     Route: 042
     Dates: start: 20150115, end: 20150115
  2. ATENOLOL. [Concomitant]
     Active Substance: ATENOLOL

REACTIONS (12)
  - Cardiopulmonary failure [None]
  - Depressed level of consciousness [None]
  - Heart rate increased [None]
  - General physical health deterioration [None]
  - Oxygen saturation decreased [None]
  - Malaise [None]
  - Infusion related reaction [None]
  - Back pain [None]
  - Cardiac arrest [None]
  - Blood pressure decreased [None]
  - Dyspnoea [None]
  - Cold sweat [None]

NARRATIVE: CASE EVENT DATE: 20150115
